FAERS Safety Report 16667234 (Version 4)
Quarter: 2020Q3

REPORT INFORMATION
  Report Type: Spontaneous
  Country: US (occurrence: US)
  Receive Date: 20190805
  Receipt Date: 20200814
  Transmission Date: 20201102
  Serious: Yes (Other)
  Sender: FDA-Public Use
  Company Number: US-GILEAD-2019-0421698

PATIENT
  Sex: Male

DRUGS (43)
  1. VIREAD [Suspect]
     Active Substance: TENOFOVIR DISOPROXIL FUMARATE
     Indication: HIV INFECTION
     Dosage: UNK
     Route: 048
     Dates: start: 2004, end: 201609
  2. DRONABINOL. [Concomitant]
     Active Substance: DRONABINOL
  3. GABAPENTIN. [Concomitant]
     Active Substance: GABAPENTIN
  4. OXANDROLONE. [Concomitant]
     Active Substance: OXANDROLONE
  5. CYCLOBENZAPRINE. [Concomitant]
     Active Substance: CYCLOBENZAPRINE
  6. TRIUMEQ [Concomitant]
     Active Substance: ABACAVIR SULFATE\DOLUTEGRAVIR SODIUM\LAMIVUDINE
  7. CEFDINIR. [Concomitant]
     Active Substance: CEFDINIR
  8. LISINOPRIL. [Concomitant]
     Active Substance: LISINOPRIL
  9. OXYCODONE AND ACETAMINOPHEN [Concomitant]
     Active Substance: ACETAMINOPHEN\OXYCODONE HYDROCHLORIDE
  10. OXYCONTIN [Concomitant]
     Active Substance: OXYCODONE HYDROCHLORIDE
  11. CEFUROXIME. [Concomitant]
     Active Substance: CEFUROXIME
  12. CIALIS [Concomitant]
     Active Substance: TADALAFIL
  13. KETOROLAC [Concomitant]
     Active Substance: KETOROLAC TROMETHAMINE
  14. METFORMIN [Concomitant]
     Active Substance: METFORMIN HYDROCHLORIDE
  15. LINZESS [Concomitant]
     Active Substance: LINACLOTIDE
  16. SIMVASTATIN. [Concomitant]
     Active Substance: SIMVASTATIN
  17. ABACAVIR. [Concomitant]
     Active Substance: ABACAVIR
  18. PROAIR HFA [Concomitant]
     Active Substance: ALBUTEROL SULFATE
  19. PENICILLIN VK [Concomitant]
     Active Substance: PENICILLIN V POTASSIUM
  20. JUBLIA [Concomitant]
     Active Substance: EFINACONAZOLE
  21. TIZANIDINE. [Concomitant]
     Active Substance: TIZANIDINE
  22. GRALISE [Concomitant]
     Active Substance: GABAPENTIN
  23. LEVOFLOXACIN. [Concomitant]
     Active Substance: LEVOFLOXACIN
  24. LUNESTA [Concomitant]
     Active Substance: ESZOPICLONE
  25. ANDROGEL [Concomitant]
     Active Substance: TESTOSTERONE
  26. PREDNISONE. [Concomitant]
     Active Substance: PREDNISONE
  27. ALPRAZOLAM. [Concomitant]
     Active Substance: ALPRAZOLAM
  28. PROMETHAZINE [Concomitant]
     Active Substance: PROMETHAZINE HYDROCHLORIDE
  29. PIOGLITAZONE. [Concomitant]
     Active Substance: PIOGLITAZONE
  30. MEMANTINE. [Concomitant]
     Active Substance: MEMANTINE
  31. ONDANSETRON [Concomitant]
     Active Substance: ONDANSETRON
  32. FENTANYL [FENTANYL CITRATE] [Concomitant]
     Active Substance: FENTANYL CITRATE
  33. PENTOXIFYLLIN [Concomitant]
     Active Substance: PENTOXIFYLLINE
  34. DONEPEZIL. [Concomitant]
     Active Substance: DONEPEZIL
  35. BIKTARVY [Concomitant]
     Active Substance: BICTEGRAVIR SODIUM\EMTRICITABINE\TENOFOVIR ALAFENAMIDE FUMARATE
  36. DESCOVY [Concomitant]
     Active Substance: EMTRICITABINE\TENOFOVIR ALAFENAMIDE FUMARATE
  37. ESZOPICLONE. [Concomitant]
     Active Substance: ESZOPICLONE
  38. BACTRIM [Concomitant]
     Active Substance: SULFAMETHOXAZOLE\TRIMETHOPRIM
  39. ISENTRESS [Concomitant]
     Active Substance: RALTEGRAVIR POTASSIUM
  40. FOCALIN XR [Concomitant]
     Active Substance: DEXMETHYLPHENIDATE HYDROCHLORIDE
  41. CYMBALTA [Concomitant]
     Active Substance: DULOXETINE HYDROCHLORIDE
  42. LEVITRA [Concomitant]
     Active Substance: VARDENAFIL HYDROCHLORIDE
  43. AMOXICILLIN + CLAV. POTASSIUM [Concomitant]
     Active Substance: AMOXICILLIN\CLAVULANATE POTASSIUM

REACTIONS (10)
  - Anhedonia [Unknown]
  - Anxiety [Unknown]
  - Osteoporosis [Not Recovered/Not Resolved]
  - Pain [Unknown]
  - Osteonecrosis [Unknown]
  - Bone density decreased [Unknown]
  - Tooth loss [Recovered/Resolved]
  - Emotional distress [Unknown]
  - Bone loss [Unknown]
  - Economic problem [Unknown]

NARRATIVE: CASE EVENT DATE: 2006
